FAERS Safety Report 26177623 (Version 1)
Quarter: 2025Q4

REPORT INFORMATION
  Report Type: Spontaneous
  Country: EU (occurrence: EU)
  Receive Date: 20251219
  Receipt Date: 20251219
  Transmission Date: 20260118
  Serious: Yes (Hospitalization)
  Sender: TEVA
  Company Number: None

PATIENT
  Age: 59 Year
  Sex: Female
  Weight: 50.3 kg

DRUGS (9)
  1. VALACYCLOVIR HYDROCHLORIDE [Suspect]
     Active Substance: VALACYCLOVIR HYDROCHLORIDE
     Indication: Antibiotic prophylaxis
     Route: 048
     Dates: start: 20251025
  2. HEPARIN CALCIUM [Suspect]
     Active Substance: HEPARIN CALCIUM
     Indication: Anticoagulant therapy
     Route: 058
     Dates: start: 20251027, end: 20251119
  3. HEPARIN CALCIUM [Suspect]
     Active Substance: HEPARIN CALCIUM
     Indication: Anticoagulant therapy
     Route: 058
     Dates: start: 20251120
  4. AMOXICILLIN [Suspect]
     Active Substance: AMOXICILLIN
     Indication: Erysipelas
     Route: 048
     Dates: start: 20251027, end: 20251109
  5. VANCOMYCIN [Suspect]
     Active Substance: VANCOMYCIN
     Indication: Infection
     Route: 042
     Dates: start: 20251103, end: 20251113
  6. BENLYSTA [Suspect]
     Active Substance: BELIMUMAB
     Indication: Systemic lupus erythematosus
     Dosage: FIRST INJECTION
     Route: 042
     Dates: start: 20251031, end: 20251031
  7. BENLYSTA [Suspect]
     Active Substance: BELIMUMAB
     Indication: Systemic lupus erythematosus
     Dosage: SECOND INJECTION
     Route: 042
     Dates: start: 20251114, end: 20251114
  8. LANSOPRAZOLE [Suspect]
     Active Substance: LANSOPRAZOLE
     Indication: Gastrooesophageal reflux disease
     Route: 048
     Dates: start: 20251020, end: 20251118
  9. BACTRIM [Suspect]
     Active Substance: SULFAMETHOXAZOLE\TRIMETHOPRIM
     Indication: Antibiotic prophylaxis
     Dosage: BACTRIM ADULTES
     Route: 048
     Dates: start: 20251108, end: 20251112

REACTIONS (1)
  - Rash maculo-papular [Recovering/Resolving]

NARRATIVE: CASE EVENT DATE: 20251109
